FAERS Safety Report 4904632-3 (Version None)
Quarter: 2006Q1

REPORT INFORMATION
  Report Type: 
  Country: None (occurrence: None)
  Receive Date: 20060208
  Receipt Date: 20050921
  Transmission Date: 20060701
  Serious: No
  Sender: FDA-Public Use
  Company Number: US-GLAXOSMITHKLINE-A0575247A

PATIENT
  Age: 42 Year
  Sex: Female

DRUGS (4)
  1. PAXIL [Suspect]
     Indication: PANIC DISORDER
     Dosage: 30MG PER DAY
     Route: 048
     Dates: start: 20010101
  2. PAROXETINE HCL [Suspect]
     Indication: PANIC DISORDER
     Dosage: 30MG TWICE PER DAY
     Route: 048
  3. ACTOS [Concomitant]
  4. BLOOD PRESSURE MEDICATION [Concomitant]
     Route: 065

REACTIONS (1)
  - DRUG INEFFECTIVE [None]
